FAERS Safety Report 25814505 (Version 2)
Quarter: 2025Q3

REPORT INFORMATION
  Report Type: Spontaneous
  Country: EU (occurrence: EU)
  Receive Date: 20250917
  Receipt Date: 20250917
  Transmission Date: 20251020
  Serious: Yes (Hospitalization)
  Sender: VERITY PHARMACEUTICALS INC.
  Company Number: EU-VER-202300001

PATIENT
  Age: 81 Year
  Sex: Male
  Weight: 65 kg

DRUGS (2)
  1. TRIPTORELIN [Suspect]
     Active Substance: TRIPTORELIN
     Indication: Prostate cancer recurrent
     Route: 030
     Dates: start: 20221218, end: 20221218
  2. BICALUTAMIDE [Suspect]
     Active Substance: BICALUTAMIDE
     Indication: Prostate cancer recurrent
     Dosage: BICALUTAMIDE 50 MG 1 TABLET/DAY FOR 30 DAYS (P. SUSPENDED ON 24/12/2022) (50 MG,24 HR)
     Route: 065
     Dates: start: 20221202, end: 20221224

REACTIONS (3)
  - Thrombocytopenia [Not Recovered/Not Resolved]
  - Haematuria [Unknown]
  - Anaemia [Recovering/Resolving]

NARRATIVE: CASE EVENT DATE: 20221224
